FAERS Safety Report 8577390-1 (Version None)
Quarter: 2012Q3

REPORT INFORMATION
  Report Type: 
  Country: None (occurrence: None)
  Receive Date: 20120807
  Receipt Date: 20120725
  Transmission Date: 20120928
  Serious: No
  Sender: FDA-Public Use
  Company Number: US-ASTRAZENECA-2012SE52837

PATIENT
  Age: 32 Year
  Sex: Female
  Weight: 49.9 kg

DRUGS (3)
  1. XANAX [Concomitant]
  2. SEROQUEL XR [Suspect]
     Indication: BIPOLAR DISORDER
     Route: 048
     Dates: start: 20110101, end: 20120701
  3. NARCO DRUGS [Concomitant]
     Indication: TEMPOROMANDIBULAR JOINT SYNDROME

REACTIONS (2)
  - DISORIENTATION [None]
  - INTENTIONAL DRUG MISUSE [None]
